FAERS Safety Report 20604145 (Version 1)
Quarter: 2022Q1

REPORT INFORMATION
  Report Type: Spontaneous
  Country: US (occurrence: None)
  Receive Date: 20220316
  Receipt Date: 20220316
  Transmission Date: 20220423
  Serious: Yes (Other)
  Sender: FDA-Public Use
  Company Number: None

PATIENT
  Sex: Female

DRUGS (37)
  1. ENBREL [Suspect]
     Active Substance: ETANERCEPT
     Indication: Psoriatic arthropathy
     Dosage: FREQUENCY : AS DIRECTED;?
     Route: 058
     Dates: start: 20180126
  2. ACID REDUCER TAB 10MG [Concomitant]
  3. BUSPIRONE TAB 15MG [Concomitant]
  4. CLONAZEPAM [Concomitant]
     Active Substance: CLONAZEPAM
  5. CLOPIDOGREL [Concomitant]
     Active Substance: CLOPIDOGREL BISULFATE
  6. CLOTRIMAZOLE TRO [Concomitant]
  7. DICLOFENAC [Concomitant]
     Active Substance: DICLOFENAC
  8. DICYCLOMINE [Concomitant]
     Active Substance: DICYCLOMINE HYDROCHLORIDE
  9. ENGREL SURCLK [Concomitant]
  10. FLEXERIL [Concomitant]
     Active Substance: CYCLOBENZAPRINE HYDROCHLORIDE
  11. FLUTICASONE [Concomitant]
     Active Substance: FLUTICASONE
  12. FOLIC ACID [Concomitant]
     Active Substance: FOLIC ACID
  13. GABAPENTIN [Concomitant]
     Active Substance: GABAPENTIN
  14. IBUPROFEN [Concomitant]
     Active Substance: IBUPROFEN
  15. IMIQUIMOD CRE [Concomitant]
  16. KETOCONAZOLE SHA [Concomitant]
  17. MAGNESIUM [Concomitant]
  18. MELATONIN [Concomitant]
     Active Substance: MELATONIN
  19. MIRALAX POW [Concomitant]
  20. MYRBETRIQ [Concomitant]
     Active Substance: MIRABEGRON
  21. NEUPROD DIS [Concomitant]
  22. NYSTATIN CRE [Concomitant]
  23. NYSTATIN [Concomitant]
     Active Substance: NYSTATIN
  24. PANTOPRAZOLE [Concomitant]
     Active Substance: PANTOPRAZOLE
  25. PRISTIQ EXTENDED-RELEASE [Concomitant]
     Active Substance: DESVENLAFAXINE SUCCINATE
  26. PROMETHAZINE HYDROCHLORIDE [Concomitant]
     Active Substance: PROMETHAZINE HYDROCHLORIDE
  27. REQUIP [Concomitant]
     Active Substance: ROPINIROLE HYDROCHLORIDE
  28. ROPINIROLE [Concomitant]
     Active Substance: ROPINIROLE
  29. SIMETHICONE CHW [Concomitant]
  30. STOOL SOFTENER (DOCUSATE) [Concomitant]
     Active Substance: DOCUSATE
  31. SUMATRIPTAN [Concomitant]
     Active Substance: SUMATRIPTAN
  32. TOPAMAX [Concomitant]
     Active Substance: TOPIRAMATE
  33. TRELEGY AER ELLIPTA [Concomitant]
  34. VENTOLIN HFA [Concomitant]
     Active Substance: ALBUTEROL SULFATE
  35. VITAMIN B12 [Concomitant]
     Active Substance: CYANOCOBALAMIN
  36. VITAMIN D [Concomitant]
     Active Substance: VITAMIN D NOS
  37. ZOFRAN [Concomitant]
     Active Substance: ONDANSETRON HYDROCHLORIDE

REACTIONS (2)
  - Surgery [None]
  - Therapy interrupted [None]
